FAERS Safety Report 7089869-2 (Version None)
Quarter: 2010Q4

REPORT INFORMATION
  Report Type: 
  Country: None (occurrence: None)
  Receive Date: 20101108
  Receipt Date: 20101025
  Transmission Date: 20110411
  Serious: Yes (Death, Other)
  Sender: FDA-Public Use
  Company Number: US-AMGEN-USASP2010001293

PATIENT

DRUGS (3)
  1. NPLATE [Suspect]
     Indication: IDIOPATHIC THROMBOCYTOPENIC PURPURA
     Dates: start: 20100407, end: 20100526
  2. CORTICOSTEROIDS [Concomitant]
     Dosage: UNK
     Dates: start: 20100317
  3. RITUXIMAB [Concomitant]
     Dosage: UNK
     Dates: start: 20100224, end: 20100323

REACTIONS (2)
  - DRUG INEFFECTIVE [None]
  - MALIGNANT NEOPLASM PROGRESSION [None]
